FAERS Safety Report 13953669 (Version 3)
Quarter: 2017Q4

REPORT INFORMATION
  Report Type: Spontaneous
  Country: US (occurrence: US)
  Receive Date: 20170911
  Receipt Date: 20171110
  Transmission Date: 20180320
  Serious: No
  Sender: FDA-Public Use
  Company Number: US-PFIZER INC-2017391030

PATIENT
  Age: 59 Year
  Sex: Female
  Weight: 88.44 kg

DRUGS (1)
  1. XELJANZ [Suspect]
     Active Substance: TOFACITINIB CITRATE
     Indication: RHEUMATOID ARTHRITIS
     Dosage: 5 MG, 2X/DAY
     Route: 048
     Dates: start: 201706

REACTIONS (7)
  - Condition aggravated [Not Recovered/Not Resolved]
  - Dysphonia [Unknown]
  - Upper respiratory tract infection [Unknown]
  - Upper respiratory tract congestion [Unknown]
  - Gastric disorder [Not Recovered/Not Resolved]
  - Abdominal discomfort [Unknown]
  - Dyspepsia [Not Recovered/Not Resolved]
